FAERS Safety Report 8365153-1 (Version None)
Quarter: 2012Q1

REPORT INFORMATION
  Report Type: 
  Country: None (occurrence: None)
  Receive Date: 20120323
  Receipt Date: 20111121
  Transmission Date: 20120608
  Serious: Yes (Other)
  Sender: FDA-Public Use
  Company Number: 163-21880-11112525

PATIENT
  Age: 72 Year
  Sex: Female

DRUGS (3)
  1. REVLIMID [Suspect]
     Indication: MULTIPLE MYELOMA
     Dosage: 25 MG, 1 IN 1 D, PO, 10 MG, 1 IN 1 D, PO, 25 MG 1 IN 1 DAY, PO
     Route: 048
     Dates: start: 20091101
  2. REVLIMID [Suspect]
     Indication: MULTIPLE MYELOMA
     Dosage: 25 MG, 1 IN 1 D, PO, 10 MG, 1 IN 1 D, PO, 25 MG 1 IN 1 DAY, PO
     Route: 048
     Dates: start: 20081101
  3. REVLIMID [Suspect]
     Indication: MULTIPLE MYELOMA
     Dosage: 25 MG, 1 IN 1 D, PO, 10 MG, 1 IN 1 D, PO, 25 MG 1 IN 1 DAY, PO
     Route: 048
     Dates: start: 20090801

REACTIONS (2)
  - PANCYTOPENIA [None]
  - DRUG INEFFECTIVE [None]
